FAERS Safety Report 10226323 (Version 1)
Quarter: 2014Q2

REPORT INFORMATION
  Report Type: Spontaneous
  Country: US (occurrence: US)
  Receive Date: 20140609
  Receipt Date: 20140609
  Transmission Date: 20141212
  Serious: Yes (Hospitalization, Other)
  Sender: FDA-Public Use
  Company Number: US-GILEAD-2014-0104604

PATIENT
  Age: 59 Year
  Sex: Female

DRUGS (10)
  1. LETAIRIS [Suspect]
     Indication: PULMONARY HYPERTENSION
     Dosage: 10 MG, QD
     Route: 065
     Dates: start: 20140305
  2. COMBIVENT [Concomitant]
  3. ADCIRCA [Concomitant]
  4. TRAZODONE [Concomitant]
  5. LEVOTHYROXINE [Concomitant]
  6. GABAPENTIN [Concomitant]
  7. FUROSEMIDE [Concomitant]
  8. AMLODIPINE [Concomitant]
  9. MIRAPEX [Concomitant]
  10. AMITRIPTYLINE [Concomitant]

REACTIONS (3)
  - Pneumonia [Unknown]
  - Cellulitis [Unknown]
  - Sepsis [Unknown]
